FAERS Safety Report 7418111-5 (Version None)
Quarter: 2011Q2

REPORT INFORMATION
  Report Type: 
  Country: None (occurrence: None)
  Receive Date: 20110415
  Receipt Date: 20110405
  Transmission Date: 20111010
  Serious: Yes (Other)
  Sender: FDA-Public Use
  Company Number: US-JNJFOC-20110405801

PATIENT
  Age: 76 Year
  Sex: Male
  Weight: 74.84 kg

DRUGS (4)
  1. EXTRA STRENGTH TYLENOL [Suspect]
     Route: 048
  2. EXTRA STRENGTH TYLENOL [Suspect]
     Route: 048
  3. EXTRA STRENGTH TYLENOL [Suspect]
     Indication: BACK PAIN
     Route: 048
  4. EXTRA STRENGTH TYLENOL [Suspect]
     Indication: TOOTHACHE
     Route: 048

REACTIONS (2)
  - HYPERSENSITIVITY [None]
  - HALLUCINATION [None]
